FAERS Safety Report 25802332 (Version 3)
Quarter: 2025Q4

REPORT INFORMATION
  Report Type: Spontaneous
  Country: EU (occurrence: EU)
  Receive Date: 20250915
  Receipt Date: 20251002
  Transmission Date: 20260117
  Serious: Yes (Hospitalization)
  Sender: MYLAN
  Company Number: EU-SERVIER-S25012365

PATIENT
  Sex: Female

DRUGS (10)
  1. AMLODIPINE [Suspect]
     Active Substance: AMLODIPINE BESYLATE
     Indication: Product used for unknown indication
     Dosage: UNK (START DATE: AUG-2025)
  2. MOXONIDINE [Suspect]
     Active Substance: MOXONIDINE
     Indication: Product used for unknown indication
     Dosage: UNK (START DATE: AUG-2025)
  3. RILMENIDINE [Suspect]
     Active Substance: RILMENIDINE
     Indication: Hypertension
     Dosage: UNK
  4. RHINOCORT [Suspect]
     Active Substance: BUDESONIDE
     Indication: Product used for unknown indication
     Dosage: UNK
  5. NAFRONYL OXALATE [Suspect]
     Active Substance: NAFRONYL OXALATE
     Indication: Product used for unknown indication
     Dosage: UNK
  6. SULODEXIDE [Suspect]
     Active Substance: SULODEXIDE
     Indication: Product used for unknown indication
     Dosage: UNK
  7. ASPIRIN [Suspect]
     Active Substance: ASPIRIN
     Indication: Product used for unknown indication
     Dosage: UNK
  8. URAPIDIL [Suspect]
     Active Substance: URAPIDIL
     Indication: Product used for unknown indication
     Dosage: UNK (START DATE: AUG-2025)
  9. ATORVASTATIN CALCIUM [Suspect]
     Active Substance: ATORVASTATIN CALCIUM
     Indication: Product used for unknown indication
     Dosage: UNK (START DATE: AUG-2025)
  10. THEOPHYLLINE [Suspect]
     Active Substance: THEOPHYLLINE
     Indication: Product used for unknown indication
     Dosage: UNK (START DATE: AUG-2025)

REACTIONS (4)
  - Urinary retention [Recovered/Resolved]
  - Abdominal discomfort [Not Recovered/Not Resolved]
  - Insomnia [Not Recovered/Not Resolved]
  - Constipation [Not Recovered/Not Resolved]

NARRATIVE: CASE EVENT DATE: 20250701
